FAERS Safety Report 18366556 (Version 2)
Quarter: 2020Q4

REPORT INFORMATION
  Report Type: Spontaneous
  Country: US (occurrence: US)
  Receive Date: 20201009
  Receipt Date: 20201105
  Transmission Date: 20210114
  Serious: Yes (Hospitalization)
  Sender: FDA-Public Use
  Company Number: US-FRESENIUS MEDICAL CARE RENAL THERAPIES GROUP-FMC-2010-001163

PATIENT
  Age: 74 Year
  Sex: Male
  Weight: 69.5 kg

DRUGS (1)
  1. DELFLEX WITH DEXTROSE 2.5% LOW MAGNESIUM LOW CALCIUM [Suspect]
     Active Substance: CALCIUM CHLORIDE\DEXTROSE\MAGNESIUM CHLORIDE\SODIUM CHLORIDE\SODIUM LACTATE
     Indication: END STAGE RENAL DISEASE
     Dosage: AT 2500 ML FOR 4 CYCLES WITH A LAST FILL OF 1000 ML, NO DAYTIME EXCHANGE (CHANGED TO 1250 ML FOR 5 C
     Route: 033

REACTIONS (4)
  - Peritonitis [Recovered/Resolved]
  - Umbilical hernia [Unknown]
  - Thrombosis [Unknown]
  - Complication associated with device [Unknown]
